FAERS Safety Report 6865229-1 (Version None)
Quarter: 2010Q3

REPORT INFORMATION
  Report Type: 
  Country: None (occurrence: None)
  Receive Date: 20100721
  Receipt Date: 20080610
  Transmission Date: 20110219
  Serious: No
  Sender: FDA-Public Use
  Company Number: US-PFIZER INC-2008035338

PATIENT
  Sex: Female
  Weight: 77.272 kg

DRUGS (4)
  1. CHANTIX [Suspect]
     Indication: SMOKING CESSATION THERAPY
     Dates: start: 20080201, end: 20080415
  2. PAXIL [Concomitant]
     Indication: DEPRESSION
  3. LAMICTAL [Concomitant]
     Indication: DEPRESSION
  4. PREVACID [Concomitant]
     Indication: GASTROOESOPHAGEAL REFLUX DISEASE

REACTIONS (6)
  - ANXIETY [None]
  - CRYING [None]
  - FEELING ABNORMAL [None]
  - FORMICATION [None]
  - INSOMNIA [None]
  - TENSION [None]
